FAERS Safety Report 10164458 (Version 2)
Quarter: 2014Q2

REPORT INFORMATION
  Report Type: Spontaneous
  Country: US (occurrence: US)
  Receive Date: 20140510
  Receipt Date: 20140510
  Transmission Date: 20141212
  Serious: No
  Sender: FDA-Public Use
  Company Number: US-BRISTOL-MYERS SQUIBB COMPANY-20187845

PATIENT
  Age: 78 Year
  Sex: Female
  Weight: 68.93 kg

DRUGS (8)
  1. BYETTA [Suspect]
     Indication: TYPE 2 DIABETES MELLITUS
     Dosage: INJ?STARTED 3YRS AGO
     Route: 058
  2. METFORMIN HCL [Suspect]
  3. ZOLOFT [Concomitant]
  4. CRESTOR [Concomitant]
  5. BACTRIM [Concomitant]
  6. CARVEDILOL [Concomitant]
  7. VITAMINS [Concomitant]
  8. PRILOSEC [Concomitant]

REACTIONS (4)
  - Confusional state [Unknown]
  - Blood glucose decreased [Unknown]
  - Night sweats [Unknown]
  - Drug dose omission [Unknown]
